FAERS Safety Report 16540282 (Version 1)
Quarter: 2019Q3

REPORT INFORMATION
  Report Type: Spontaneous
  Country: US (occurrence: US)
  Receive Date: 20190706
  Receipt Date: 20190706
  Transmission Date: 20191004
  Serious: Yes (Disabling)
  Sender: FDA-Public Use
  Company Number: None

PATIENT
  Age: 64 Year
  Sex: Male
  Weight: 132.75 kg

DRUGS (2)
  1. ESCITALOPRAM 20 MG TAB - SHAPE ROUND, COLOR WHITE, SIDE 1 P20 [Suspect]
     Active Substance: ESCITALOPRAM OXALATE
     Indication: OBSESSIVE-COMPULSIVE DISORDER
     Dosage: ?          QUANTITY:1 TABLET(S);?
     Route: 048
     Dates: start: 20190509, end: 20190706
  2. ESCITALOPRAM 20 MG TAB - SHAPE ROUND, COLOR WHITE, SIDE 1 P20 [Suspect]
     Active Substance: ESCITALOPRAM OXALATE
     Indication: ANXIETY
     Dosage: ?          QUANTITY:1 TABLET(S);?
     Route: 048
     Dates: start: 20190509, end: 20190706

REACTIONS (5)
  - Product quality issue [None]
  - Drug ineffective [None]
  - Manufacturing materials issue [None]
  - Symptom recurrence [None]
  - Product substitution issue [None]

NARRATIVE: CASE EVENT DATE: 20190512
